FAERS Safety Report 22308948 (Version 1)
Quarter: 2023Q2

REPORT INFORMATION
  Report Type: Spontaneous
  Country: US (occurrence: None)
  Receive Date: 20230510
  Receipt Date: 20230510
  Transmission Date: 20230722
  Serious: No
  Sender: FDA-Public Use
  Company Number: None

PATIENT
  Sex: Female

DRUGS (1)
  1. COSENTYX [Suspect]
     Active Substance: SECUKINUMAB
     Dosage: 300MG EVERY 4 WEEKS SUBCUTANEOUSLY
     Route: 058
     Dates: start: 202304

REACTIONS (2)
  - Rheumatoid arthritis [None]
  - Psoriatic arthropathy [None]
